FAERS Safety Report 6954733-3 (Version None)
Quarter: 2010Q3

REPORT INFORMATION
  Report Type: 
  Country: None (occurrence: None)
  Receive Date: 20100830
  Receipt Date: 20100824
  Transmission Date: 20110219
  Serious: Yes (Death)
  Sender: FDA-Public Use
  Company Number: US-BIOGENIDEC-2009BI028516

PATIENT
  Age: 52 Year
  Sex: Male
  Weight: 92 kg

DRUGS (1)
  1. TYSABRI [Suspect]
     Indication: MULTIPLE SCLEROSIS
     Route: 042
     Dates: start: 20090730, end: 20090730

REACTIONS (2)
  - ARRHYTHMIA [None]
  - CENTRAL NERVOUS SYSTEM INFECTION [None]
